FAERS Safety Report 24645891 (Version 1)
Quarter: 2024Q4

REPORT INFORMATION
  Report Type: Spontaneous
  Country: US (occurrence: US)
  Receive Date: 20241121
  Receipt Date: 20241121
  Transmission Date: 20250114
  Serious: Yes (Hospitalization)
  Sender: NOVITIUM PHARMA
  Company Number: US-NOVITIUMPHARMA-2024USNVP02599

PATIENT
  Age: 12 Year
  Sex: Male

DRUGS (5)
  1. PREDNISONE [Suspect]
     Active Substance: PREDNISONE
     Indication: Pemphigus
  2. DESONIDE [Concomitant]
     Active Substance: DESONIDE
     Indication: Pemphigus
  3. TRIAMCINOLONE [Concomitant]
     Active Substance: TRIAMCINOLONE
     Indication: Pemphigus
  4. Immuneglobulin [Concomitant]
     Indication: Pemphigus
  5. DAPSONE [Concomitant]
     Active Substance: DAPSONE
     Indication: Pemphigus

REACTIONS (1)
  - Rebound effect [Unknown]
